FAERS Safety Report 6842762-X (Version None)
Quarter: 2010Q3

REPORT INFORMATION
  Report Type: 
  Country: None (occurrence: None)
  Receive Date: 20100714
  Receipt Date: 20071228
  Transmission Date: 20110219
  Serious: No
  Sender: FDA-Public Use
  Company Number: US-PFIZER INC-2007066075

PATIENT
  Sex: Female
  Weight: 70.5 kg

DRUGS (3)
  1. CHANTIX [Suspect]
     Indication: SMOKING CESSATION THERAPY
     Dates: start: 20070725, end: 20070803
  2. PREDNISONE TAB [Concomitant]
  3. AVELOX [Concomitant]

REACTIONS (7)
  - DRY EYE [None]
  - EYE IRRITATION [None]
  - HYPERSENSITIVITY [None]
  - INAPPROPRIATE SCHEDULE OF DRUG ADMINISTRATION [None]
  - LACRIMATION INCREASED [None]
  - NAUSEA [None]
  - OCULAR HYPERAEMIA [None]
